FAERS Safety Report 26211749 (Version 1)
Quarter: 2025Q4

REPORT INFORMATION
  Report Type: Spontaneous
  Country: RU (occurrence: RU)
  Receive Date: 20251230
  Receipt Date: 20251230
  Transmission Date: 20260117
  Serious: Yes (Other)
  Sender: CHEPLAPHARM
  Company Number: RU-CHEPLA-2025014465

PATIENT
  Age: 33 Year
  Sex: Male

DRUGS (6)
  1. QUETIAPINE [Suspect]
     Active Substance: QUETIAPINE
     Indication: Antipsychotic therapy
     Dosage: 50-100 MG PER DAY, TWICE A DAY
  2. QUETIAPINE [Suspect]
     Active Substance: QUETIAPINE
     Indication: Antipsychotic therapy
     Dosage: 2 TIMES?DAILY DOSE: 50 MILLIGRAM
  3. QUETIAPINE [Suspect]
     Active Substance: QUETIAPINE
     Indication: Antipsychotic therapy
     Dosage: 2 TIMES?DAILY DOSE: 100 MILLIGRAM
  4. MIRTAZAPINE [Suspect]
     Active Substance: MIRTAZAPINE
     Dosage: DAILY DOSE: 45 MILLIGRAM
  5. CHOLINE ALFOSCERATE [Suspect]
     Active Substance: CHOLINE ALFOSCERATE
     Dosage: 2 TIMES?DAILY DOSE: 1000 MILLIGRAM
  6. EMOXYPINE SUCCINATE [Suspect]
     Active Substance: EMOXYPINE SUCCINATE
     Dosage: 3 TIMES A DAY?DAILY DOSE: 375 MILLIGRAM

REACTIONS (10)
  - Encephalitis autoimmune [Unknown]
  - Seizure [Unknown]
  - Generalised tonic-clonic seizure [Unknown]
  - Rhabdomyolysis [Unknown]
  - Psychomotor hyperactivity [Unknown]
  - Confusional state [Unknown]
  - Insomnia [Unknown]
  - Tremor [Unknown]
  - Affective disorder [Unknown]
  - Ketonuria [Unknown]

NARRATIVE: CASE EVENT DATE: 20221101
